FAERS Safety Report 6407851-2 (Version None)
Quarter: 2009Q4

REPORT INFORMATION
  Report Type: 
  Country: None (occurrence: None)
  Receive Date: 20091020
  Receipt Date: 20091015
  Transmission Date: 20100525
  Serious: Yes (Disabling, Other)
  Sender: FDA-Public Use
  Company Number: US-MERCK-0805USA02823

PATIENT
  Age: 46 Year
  Sex: Female

DRUGS (9)
  1. FOSAMAX [Suspect]
     Indication: OSTEOPOROSIS
     Route: 048
     Dates: start: 20050501, end: 20061101
  2. FOSAMAX [Suspect]
     Route: 048
  3. LEVAQUIN [Concomitant]
     Route: 065
     Dates: start: 20030101
  4. CLEOCIN [Concomitant]
     Route: 065
     Dates: start: 20030101
  5. ALBUTEROL [Concomitant]
     Route: 065
     Dates: start: 20030101
  6. CIPRO [Concomitant]
     Route: 065
     Dates: start: 20040101
  7. AMOXICILLIN [Concomitant]
     Route: 065
     Dates: start: 20050101
  8. TETRACYCLINE [Concomitant]
     Route: 065
     Dates: start: 20050101
  9. FOSAMAX PLUS D [Suspect]
     Route: 048
     Dates: start: 20060801

REACTIONS (19)
  - ANAEMIA [None]
  - BODY TINEA [None]
  - BONE DENSITY DECREASED [None]
  - CONJUNCTIVITIS [None]
  - GASTRIC CANCER [None]
  - GASTRITIS [None]
  - GINGIVAL BLEEDING [None]
  - HELICOBACTER GASTRITIS [None]
  - HIATUS HERNIA [None]
  - HYPERSENSITIVITY [None]
  - HYPOGLYCAEMIA [None]
  - IMPAIRED HEALING [None]
  - INFECTION [None]
  - OSTEONECROSIS [None]
  - PEPTIC ULCER [None]
  - POLYDIPSIA [None]
  - POLYURIA [None]
  - TOOTH DISORDER [None]
  - TOOTH LOSS [None]
